FAERS Safety Report 11175901 (Version 3)
Quarter: 2015Q3

REPORT INFORMATION
  Report Type: Spontaneous
  Country: JP (occurrence: JP)
  Receive Date: 20150609
  Receipt Date: 20150723
  Transmission Date: 20151125
  Serious: Yes (Hospitalization)
  Sender: FDA-Public Use
  Company Number: JP-DSJP-DSJ-2015-117614

PATIENT
  Age: 74 Year
  Sex: Female

DRUGS (2)
  1. PANSPORIN [Suspect]
     Active Substance: CEFOTIAM HYDROCHLORIDE
     Dosage: 300MG/DAY
     Route: 048
     Dates: start: 20150530
  2. LIXIANA TABLETS [Suspect]
     Active Substance: EDOXABAN TOSILATE MONOHYDRATE
     Indication: EMBOLISM VENOUS
     Dosage: 30MG/DAY
     Route: 048
     Dates: start: 20150318

REACTIONS (2)
  - Peritonitis [Recovered/Resolved]
  - Interstitial lung disease [Recovered/Resolved]

NARRATIVE: CASE EVENT DATE: 20150529
